FAERS Safety Report 24529548 (Version 2)
Quarter: 2024Q4

REPORT INFORMATION
  Report Type: Report from Study
  Country: JP (occurrence: JP)
  Receive Date: 20241021
  Receipt Date: 20241120
  Transmission Date: 20250115
  Serious: Yes (Death, Hospitalization, Other)
  Sender: ALEXION PHARMACEUTICALS
  Company Number: JP-ASTRAZENECA-240079964_013120_P_1

PATIENT
  Age: 75 Year
  Weight: 45 kg

DRUGS (2)
  1. DURVALUMAB [Suspect]
     Active Substance: DURVALUMAB
     Indication: Hepatocellular carcinoma
     Dosage: 1500 MILLIGRAM, UNK
  2. IMJUDO [Suspect]
     Active Substance: TREMELIMUMAB\TREMELIMUMAB-ACTL
     Dosage: 300 MILLIGRAM, UNK

REACTIONS (3)
  - Diarrhoea [Recovering/Resolving]
  - Liver abscess [Fatal]
  - Hepatorenal failure [Fatal]
